FAERS Safety Report 17134691 (Version 1)
Quarter: 2019Q4

REPORT INFORMATION
  Report Type: Spontaneous
  Country: CA (occurrence: CA)
  Receive Date: 20191210
  Receipt Date: 20191210
  Transmission Date: 20200122
  Serious: Yes (Other)
  Sender: FDA-Public Use
  Company Number: CA-ROCHE-2489320

PATIENT
  Sex: Female
  Weight: 97 kg

DRUGS (23)
  1. WINPRED [Concomitant]
     Active Substance: PREDNISONE
     Route: 065
  2. APO-BISOPROLOL [Concomitant]
     Active Substance: BISOPROLOL FUMARATE
     Route: 065
  3. DIPHENHYDRAMINE. [Concomitant]
     Active Substance: DIPHENHYDRAMINE
  4. JAMP-CALCIUM + VITAMIN D [Concomitant]
     Route: 065
  5. NITROGLYCERIN. [Concomitant]
     Active Substance: NITROGLYCERIN
  6. LIRAGLUTIDE [Suspect]
     Active Substance: LIRAGLUTIDE
     Indication: DIABETES MELLITUS
     Route: 065
  7. PREGABALIN. [Concomitant]
     Active Substance: PREGABALIN
  8. ACETAMINOPHEN. [Concomitant]
     Active Substance: ACETAMINOPHEN
  9. DIAMICRON [Concomitant]
     Active Substance: GLICLAZIDE
     Route: 065
  10. LOSEC [Concomitant]
     Active Substance: OMEPRAZOLE
  11. NOVORAPID [Concomitant]
     Active Substance: INSULIN ASPART
     Route: 058
  12. CAFFEINE;CODEINE;PARACETAMOL [Concomitant]
     Active Substance: ACETAMINOPHEN\CAFFEINE\CODEINE
  13. EURO-FER [Concomitant]
     Route: 065
  14. LANTUS [Concomitant]
     Active Substance: INSULIN GLARGINE
  15. APO-PREDNISONE [Concomitant]
     Active Substance: PREDNISONE
     Route: 065
  16. INSULIN HUMAN [Concomitant]
     Active Substance: INSULIN HUMAN
  17. METFORMIN [Concomitant]
     Active Substance: METFORMIN HYDROCHLORIDE
     Route: 065
  18. NAPROXEN. [Concomitant]
     Active Substance: NAPROXEN
  19. VENTOLIN [Concomitant]
     Active Substance: ALBUTEROL SULFATE
  20. RITUXAN [Suspect]
     Active Substance: RITUXIMAB
     Indication: RHEUMATOID ARTHRITIS
     Route: 042
  21. PMS HYDROCHLOROTHIAZIDE [Suspect]
     Active Substance: HYDROCHLOROTHIAZIDE
     Indication: PRODUCT USED FOR UNKNOWN INDICATION
     Route: 065
  22. FUROSEMIDE. [Concomitant]
     Active Substance: FUROSEMIDE
  23. METHYLPREDNISOLONE. [Concomitant]
     Active Substance: METHYLPREDNISOLONE

REACTIONS (13)
  - Cataract [Not Recovered/Not Resolved]
  - Constipation [Not Recovered/Not Resolved]
  - Headache [Not Recovered/Not Resolved]
  - Joint swelling [Not Recovered/Not Resolved]
  - Weight decreased [Not Recovered/Not Resolved]
  - Cardiac discomfort [Not Recovered/Not Resolved]
  - Dyspnoea [Not Recovered/Not Resolved]
  - Peripheral swelling [Not Recovered/Not Resolved]
  - Arthralgia [Not Recovered/Not Resolved]
  - Infusion related reaction [Not Recovered/Not Resolved]
  - Diabetes mellitus inadequate control [Not Recovered/Not Resolved]
  - Weight increased [Not Recovered/Not Resolved]
  - Nausea [Not Recovered/Not Resolved]
